FAERS Safety Report 15352896 (Version 1)
Quarter: 2018Q3

REPORT INFORMATION
  Report Type: Spontaneous
  Country: PT (occurrence: PT)
  Receive Date: 20180905
  Receipt Date: 20180905
  Transmission Date: 20181010
  Serious: Yes (Hospitalization, Disabling)
  Sender: FDA-Public Use
  Company Number: PT-ASTRAZENECA-2018SF09099

PATIENT
  Age: 27214 Day
  Sex: Male

DRUGS (1)
  1. XIGDUO XR [Suspect]
     Active Substance: DAPAGLIFLOZIN PROPANEDIOL\METFORMIN HYDROCHLORIDE
     Route: 048
     Dates: start: 20170131, end: 20180731

REACTIONS (2)
  - Extremity necrosis [Unknown]
  - Toe amputation [Unknown]

NARRATIVE: CASE EVENT DATE: 20180711
